FAERS Safety Report 6323027-1 (Version None)
Quarter: 2009Q3

REPORT INFORMATION
  Report Type: 
  Country: None (occurrence: None)
  Receive Date: 20090824
  Receipt Date: 20090316
  Transmission Date: 20100115
  Serious: No
  Sender: FDA-Public Use
  Company Number: US-ABBOTT-09P-163-0562821-00

PATIENT
  Sex: Male

DRUGS (4)
  1. NIASPAN [Suspect]
     Indication: BLOOD TRIGLYCERIDES INCREASED
     Dosage: EVERY NIGHT
     Dates: start: 20090201, end: 20090301
  2. NIASPAN [Suspect]
  3. BUFFERIN [Concomitant]
     Indication: DRUG USE FOR UNKNOWN INDICATION
  4. CRESTOR [Concomitant]
     Indication: DRUG USE FOR UNKNOWN INDICATION

REACTIONS (6)
  - ABDOMINAL DISCOMFORT [None]
  - DYSPEPSIA [None]
  - FLUSHING [None]
  - NAUSEA [None]
  - PARAESTHESIA [None]
  - SLEEP DISORDER [None]
